FAERS Safety Report 8394635-1 (Version None)
Quarter: 2012Q2

REPORT INFORMATION
  Report Type: 
  Country: None (occurrence: None)
  Receive Date: 20120525
  Receipt Date: 20120525
  Transmission Date: 20120825
  Serious: Yes (Hospitalization)
  Sender: FDA-Public Use
  Company Number: None

PATIENT
  Age: 27 Year
  Sex: Male
  Weight: 93.2595 kg

DRUGS (19)
  1. ZOFRAN [Concomitant]
  2. MEBENDAZOLE [Concomitant]
  3. DURAGESIC-100 [Concomitant]
  4. COMPAZINE [Concomitant]
  5. TESTOSTERONE [Concomitant]
  6. EPLERENONE [Concomitant]
  7. POTASSIUM CHLORIDE [Concomitant]
  8. ALBUTEROL [Concomitant]
  9. METHADONE HYDROCHLORIDE [Concomitant]
  10. CYCLOBENZAPRINE [Concomitant]
  11. HYDROCORTISONE [Concomitant]
  12. NEURONTIN [Concomitant]
  13. RAPAMUNE [Concomitant]
  14. PRILOSEC [Concomitant]
  15. AMILORIDE HYDROCHLORIDE [Concomitant]
  16. CLARITIN [Concomitant]
  17. FERAHEME [Suspect]
     Indication: ANAEMIA OF MALIGNANT DISEASE
     Dosage: 510 MG WEEKLY IV
     Route: 042
     Dates: start: 20120124, end: 20120124
  18. ARIXTRA [Concomitant]
  19. POTASSIUM PHOSPHATES [Concomitant]

REACTIONS (3)
  - INFUSION RELATED REACTION [None]
  - PELVIC PAIN [None]
  - HYPERTENSION [None]
